FAERS Safety Report 11076711 (Version 2)
Quarter: 2015Q2

REPORT INFORMATION
  Report Type: Report from Study
  Country: AU (occurrence: AU)
  Receive Date: 20150429
  Receipt Date: 20150429
  Transmission Date: 20150821
  Serious: Yes (Hospitalization)
  Sender: FDA-Public Use
  Company Number: AU-ABBVIE-15P-008-1383077-00

PATIENT
  Sex: Male

DRUGS (1)
  1. DUODOPA [Suspect]
     Active Substance: CARBIDOPA\LEVODOPA
     Indication: PRODUCT USED FOR UNKNOWN INDICATION
     Route: 050
     Dates: end: 20120622

REACTIONS (10)
  - Emotional distress [Unknown]
  - Device connection issue [Unknown]
  - Device connection issue [Unknown]
  - Incorrect route of drug administration [Unknown]
  - Device occlusion [Unknown]
  - Device dislocation [Unknown]
  - Medical device change [Unknown]
  - Incorrect route of drug administration [Unknown]
  - Anxiety [Unknown]
  - Device dislocation [Unknown]

NARRATIVE: CASE EVENT DATE: 20120613
